FAERS Safety Report 4582379-3 (Version None)
Quarter: 2005Q1

REPORT INFORMATION
  Report Type: 
  Country: None (occurrence: None)
  Receive Date: 20050125
  Receipt Date: 20040825
  Transmission Date: 20050727
  Serious: No
  Sender: FDA-Public Use
  Company Number: USA040876540

PATIENT
  Age: 85 Year
  Sex: Female

DRUGS (6)
  1. FORTEO [Suspect]
     Indication: OSTEOPOROSIS
     Dates: start: 20040821
  2. PLAVIX [Concomitant]
  3. GLYBURIDE [Concomitant]
  4. NEXIUM [Concomitant]
  5. METOPROLOL [Concomitant]
  6. LIPITOR [Concomitant]

REACTIONS (1)
  - INJECTION SITE ERYTHEMA [None]
